FAERS Safety Report 22598608 (Version 1)
Quarter: 2023Q2

REPORT INFORMATION
  Report Type: Spontaneous
  Country: US (occurrence: US)
  Receive Date: 20230614
  Receipt Date: 20230614
  Transmission Date: 20230721
  Serious: No
  Sender: FDA-Public Use
  Company Number: US-009507513-2306USA006083

PATIENT
  Age: 27 Year
  Sex: Male

DRUGS (6)
  1. CANCIDAS [Suspect]
     Active Substance: CASPOFUNGIN ACETATE
     Indication: Infection prophylaxis
     Dosage: UNK
  2. VENETOCLAX [Concomitant]
     Active Substance: VENETOCLAX
     Indication: B-cell type acute leukaemia
     Route: 048
  3. FLUDARABINE [Concomitant]
     Active Substance: FLUDARABINE PHOSPHATE
     Indication: B-cell type acute leukaemia
  4. CYTARABINE [Concomitant]
     Active Substance: CYTARABINE
     Indication: B-cell type acute leukaemia
     Dosage: UNK
  5. FILGRASTIM [Concomitant]
     Active Substance: FILGRASTIM
     Indication: B-cell type acute leukaemia
     Dosage: UNK
  6. LEVOFLOXACIN [Concomitant]
     Active Substance: LEVOFLOXACIN
     Indication: Infection prophylaxis
     Dosage: UNK

REACTIONS (1)
  - Product use in unapproved indication [Unknown]
